FAERS Safety Report 8572503-X (Version None)
Quarter: 2012Q3

REPORT INFORMATION
  Report Type: 
  Country: None (occurrence: None)
  Receive Date: 20120806
  Receipt Date: 20120731
  Transmission Date: 20120928
  Serious: Yes (Hospitalization)
  Sender: FDA-Public Use
  Company Number: AT-ROCHE-1091179

PATIENT
  Sex: Female
  Weight: 62 kg

DRUGS (3)
  1. DOCETAXEL [Concomitant]
     Indication: BREAST CANCER METASTATIC
  2. AVASTIN [Suspect]
     Indication: BREAST CANCER METASTATIC
     Route: 042
     Dates: start: 20111122
  3. VINORELBINE [Concomitant]
     Indication: BREAST CANCER METASTATIC
     Route: 042
     Dates: start: 20111129

REACTIONS (2)
  - HYPERTENSIVE CRISIS [None]
  - NEUROLOGICAL SYMPTOM [None]
